FAERS Safety Report 6984694-2 (Version None)
Quarter: 2010Q3

REPORT INFORMATION
  Report Type: 
  Country: None (occurrence: None)
  Receive Date: 20100915
  Receipt Date: 20100908
  Transmission Date: 20110219
  Serious: Yes (Hospitalization, Other)
  Sender: FDA-Public Use
  Company Number: AU-NOVOPROD-314519

PATIENT
  Age: 38 Year
  Sex: Female

DRUGS (1)
  1. NOVOMIX 30 [Suspect]
     Indication: GESTATIONAL DIABETES

REACTIONS (3)
  - BLOOD KETONE BODY [None]
  - DRUG EXPOSURE DURING PREGNANCY [None]
  - INTRA-UTERINE DEATH [None]
